FAERS Safety Report 4842908-9 (Version None)
Quarter: 2005Q4

REPORT INFORMATION
  Report Type: 
  Country: None (occurrence: None)
  Receive Date: 20051130
  Receipt Date: 20051114
  Transmission Date: 20060501
  Serious: Yes (Hospitalization)
  Sender: FDA-Public Use
  Company Number: 2005EU002584

PATIENT
  Sex: Female

DRUGS (10)
  1. FK506(TACROLIMUS CAPSULES)(TACROLIMUS) CAPSULE [Suspect]
     Indication: LIVER TRANSPLANT
     Dosage: SEE IMAGE
     Dates: start: 20050217, end: 20050218
  2. FK506(TACROLIMUS CAPSULES)(TACROLIMUS) CAPSULE [Suspect]
     Indication: LIVER TRANSPLANT
     Dosage: SEE IMAGE
     Dates: start: 20050218, end: 20050625
  3. MYCOPHENOLATE MOFETIL (MYCOPHENOLATE MOFETIL) [Suspect]
     Indication: LIVER TRANSPLANT
     Dosage: SEE IMAGE
     Dates: start: 20050217, end: 20050221
  4. MYCOPHENOLATE MOFETIL (MYCOPHENOLATE MOFETIL) [Suspect]
     Indication: LIVER TRANSPLANT
     Dosage: SEE IMAGE
     Dates: start: 20050222, end: 20050624
  5. PREDNISONE [Suspect]
     Indication: LIVER TRANSPLANT
     Dosage: 75 MG, UID/QD
     Dates: start: 20050218, end: 20050220
  6. PREDNISONE [Suspect]
     Indication: LIVER TRANSPLANT
     Dosage: 7.5 MG,UID/QD
     Dates: start: 20050220
  7. CORTICOSTEROIDS () [Suspect]
     Indication: LIVER TRANSPLANT
     Dosage: 500 MG, UID/QD
     Dates: start: 20050716, end: 20050720
  8. GANCICLOVIR SODIUM [Concomitant]
  9. INSULIN [Concomitant]
  10. FUROSEMIDE [Concomitant]

REACTIONS (3)
  - COORDINATION ABNORMAL [None]
  - DRUG TOXICITY [None]
  - DYSARTHRIA [None]
